FAERS Safety Report 24048354 (Version 1)
Quarter: 2024Q3

REPORT INFORMATION
  Report Type: Spontaneous
  Country: FI (occurrence: FI)
  Receive Date: 20240704
  Receipt Date: 20240704
  Transmission Date: 20241017
  Serious: Yes (Hospitalization)
  Sender: UCB
  Company Number: None

PATIENT
  Age: 66 Year
  Sex: Female

DRUGS (8)
  1. BIMZELX [Suspect]
     Active Substance: BIMEKIZUMAB-BKZX
     Indication: Psoriatic arthropathy
     Dosage: 160 MILLIGRAM, EV 4 WEEKS
     Route: 058
     Dates: end: 202401
  2. LEVOTHYROXINE [Concomitant]
     Active Substance: LEVOTHYROXINE\LEVOTHYROXINE SODIUM
     Indication: Hypothyroidism
     Dosage: 100 MICROGRAM, ONCE DAILY (QD) MORNING
     Route: 048
  3. ORISANTIN [ACETYLSALICYLIC ACID;DIPYRIDAMOLE] [Concomitant]
     Indication: Anticoagulant therapy
     Dosage: 2 DOSAGE FORM, ONCE DAILY (QD) (1 MORNING, 1 EVENING)
     Route: 048
     Dates: start: 2005
  4. ALLOPURINOL [Concomitant]
     Active Substance: ALLOPURINOL
     Indication: Gout
     Dosage: 400 MILLIGRAM, ONCE DAILY (QD) (300 MG MORNING 100 MG EVENING)
     Route: 048
  5. ADALIMUMAB [Concomitant]
     Active Substance: ADALIMUMAB\ISOPROPYL ALCOHOL
     Indication: Psoriatic arthropathy
     Dosage: 40 MILLIGRAM, WEEKLY (QW)
     Route: 058
     Dates: start: 2022, end: 202310
  6. SIMVASTATIN [Concomitant]
     Active Substance: SIMVASTATIN
     Indication: Blood cholesterol
     Dosage: 40 MILLIGRAM, ONCE DAILY (QD) IN EVENING
     Route: 048
     Dates: start: 2005
  7. VAGIFEM [Concomitant]
     Active Substance: ESTRADIOL
     Indication: Product used for unknown indication
     Dosage: 2 DOSAGE FORM, WEEKLY (QW)
     Route: 067
     Dates: start: 2014
  8. ATACAND [Concomitant]
     Active Substance: CANDESARTAN CILEXETIL
     Indication: Blood pressure abnormal
     Dosage: 16 MILLIGRAM, ONCE DAILY (QD) MORNING
     Route: 048
     Dates: start: 2005

REACTIONS (7)
  - Oral candidiasis [Not Recovered/Not Resolved]
  - Dysphagia [Not Recovered/Not Resolved]
  - Herpes dermatitis [Not Recovered/Not Resolved]
  - Nasal ulcer [Not Recovered/Not Resolved]
  - Ageusia [Not Recovered/Not Resolved]
  - Oral lichen planus [Not Recovered/Not Resolved]
  - Papule [Not Recovered/Not Resolved]
